FAERS Safety Report 24444676 (Version 2)
Quarter: 2024Q4

REPORT INFORMATION
  Report Type: Spontaneous
  Country: BD (occurrence: BD)
  Receive Date: 20241016
  Receipt Date: 20241022
  Transmission Date: 20250114
  Serious: Yes (Death, Hospitalization)
  Sender: SANDOZ
  Company Number: BD-002147023-NVSC2024BD200856

PATIENT
  Age: 85 Year
  Sex: Female
  Weight: 65 kg

DRUGS (2)
  1. ACLASTA [Suspect]
     Active Substance: ZOLEDRONIC ACID
     Dosage: UNK,  5MG/100ML, ONCE A YEAR
     Route: 042
     Dates: start: 201611, end: 20231110
  2. ACLASTA [Suspect]
     Active Substance: ZOLEDRONIC ACID
     Indication: Osteoporosis
     Dosage: 5/100- 1S
     Route: 065

REACTIONS (2)
  - Cerebrovascular accident [Fatal]
  - Paralysis [Fatal]

NARRATIVE: CASE EVENT DATE: 20240528
